FAERS Safety Report 5365803-8 (Version None)
Quarter: 2007Q2

REPORT INFORMATION
  Report Type: 
  Country: None (occurrence: None)
  Receive Date: 20070621
  Receipt Date: 20070619
  Transmission Date: 20071010
  Serious: Yes (Other)
  Sender: FDA-Public Use
  Company Number: US-SHR-US-2006-038953

PATIENT
  Age: 45 Year
  Sex: Female

DRUGS (4)
  1. CAMPATH [Suspect]
     Indication: BONE MARROW CONDITIONING REGIMEN
     Dosage: 60 MG, UNK
  2. FILGRASTIM [Concomitant]
     Indication: COLONY STIMULATING FACTOR THERAPY
  3. ANTIINFECTIVES [Concomitant]
  4. CYCLOPHOSPHAMIDE [Suspect]
     Indication: BONE MARROW CONDITIONING REGIMEN

REACTIONS (3)
  - ANAEMIA HAEMOLYTIC AUTOIMMUNE [None]
  - AUTOIMMUNE NEUTROPENIA [None]
  - NEUTROPENIC SEPSIS [None]
